FAERS Safety Report 4860635-9 (Version None)
Quarter: 2005Q4

REPORT INFORMATION
  Report Type: 
  Country: None (occurrence: None)
  Receive Date: 20051216
  Receipt Date: 20051202
  Transmission Date: 20060501
  Serious: Yes (Other)
  Sender: FDA-Public Use
  Company Number: 200514589BCC

PATIENT
  Sex: Male
  Weight: 129.2752 kg

DRUGS (2)
  1. ALKA-SELTZER PLUS COLD EFFERVESCENT [Suspect]
     Indication: NASOPHARYNGITIS
     Dosage: ORAL
     Route: 048
  2. ALKA-SELTZER [Suspect]
     Dosage: ORAL
     Route: 048

REACTIONS (2)
  - ATRIAL FIBRILLATION [None]
  - DIABETES MELLITUS [None]
